FAERS Safety Report 17785858 (Version 1)
Quarter: 2020Q2

REPORT INFORMATION
  Report Type: Spontaneous
  Country: US (occurrence: US)
  Receive Date: 20200514
  Receipt Date: 20200514
  Transmission Date: 20200714
  Serious: Yes (Death, Disabling, Other)
  Sender: FDA-Public Use
  Company Number: US-SA-2020SA124609

PATIENT
  Age: 72 Year
  Sex: Male

DRUGS (1)
  1. GOLD BOND ORIGINAL STRENGTH POWDER [Suspect]
     Active Substance: MENTHOL\ZINC OXIDE

REACTIONS (6)
  - Pain [Unknown]
  - Emotional distress [Unknown]
  - Lung neoplasm malignant [Fatal]
  - Exposure to chemical pollution [Fatal]
  - Impaired work ability [Unknown]
  - Occupational exposure to product [Fatal]

NARRATIVE: CASE EVENT DATE: 201912
